FAERS Safety Report 16231573 (Version 1)
Quarter: 2019Q2

REPORT INFORMATION
  Report Type: Report from Study
  Country: US (occurrence: US)
  Receive Date: 20190424
  Receipt Date: 20190424
  Transmission Date: 20190711
  Serious: Yes (Hospitalization, Other)
  Sender: FDA-Public Use
  Company Number: US-AMGEN-USASL2017188916

PATIENT
  Age: 88 Year
  Sex: Female

DRUGS (2)
  1. REPATHA [Suspect]
     Active Substance: EVOLOCUMAB
     Indication: BLOOD CHOLESTEROL INCREASED
     Dosage: 140 MG, Q2WK
     Route: 065
  2. REPATHA [Suspect]
     Active Substance: EVOLOCUMAB
     Indication: HYPERCHOLESTEROLAEMIA

REACTIONS (8)
  - Acute kidney injury [Recovered/Resolved]
  - Face injury [Unknown]
  - Haemorrhage [Unknown]
  - Joint swelling [Unknown]
  - Facial bones fracture [Unknown]
  - Fall [Unknown]
  - Injection site bruising [Unknown]
  - Skin discolouration [Unknown]

NARRATIVE: CASE EVENT DATE: 201712
